FAERS Safety Report 19827099 (Version 1)
Quarter: 2021Q3

REPORT INFORMATION
  Report Type: Report from Study
  Country: US (occurrence: US)
  Receive Date: 20210914
  Receipt Date: 20210914
  Transmission Date: 20211014
  Serious: Yes (Hospitalization, Other)
  Sender: FDA-Public Use
  Company Number: US-ROCHE-1760105

PATIENT
  Age: 64 Year
  Sex: Male

DRUGS (25)
  1. PERCOCET [Concomitant]
     Active Substance: ACETAMINOPHEN\OXYCODONE HYDROCHLORIDE
     Dosage: 10?325 MG TABLET
     Route: 048
     Dates: start: 20160710
  2. VENTOLIN HFA [Concomitant]
     Active Substance: ALBUTEROL SULFATE
     Dosage: INHALE 2 PUFFS BY MOUTH EVERY 4 HOURS AS NEEDED.
     Route: 055
     Dates: start: 20151216
  3. FLUTICASONE. [Suspect]
     Active Substance: FLUTICASONE
     Indication: PRODUCT USED FOR UNKNOWN INDICATION
     Dates: start: 20151002
  4. AZATHIOPRINE. [Suspect]
     Active Substance: AZATHIOPRINE
     Indication: ANTI-NEUTROPHIL CYTOPLASMIC ANTIBODY POSITIVE VASCULITIS
     Route: 048
     Dates: start: 20140908, end: 20160209
  5. DOCQLACE [Concomitant]
     Active Substance: DOCUSATE SODIUM
     Route: 048
     Dates: start: 20150824
  6. ALBUTEROL. [Suspect]
     Active Substance: ALBUTEROL
     Indication: PRODUCT USED FOR UNKNOWN INDICATION
     Dosage: 14 H PRN
     Route: 048
     Dates: start: 20151216
  7. OMEPRAZOLE. [Suspect]
     Active Substance: OMEPRAZOLE
     Indication: PRODUCT USED FOR UNKNOWN INDICATION
     Route: 048
     Dates: start: 20151016
  8. OXYCODONE;PARACETAMOL [Suspect]
     Active Substance: ACETAMINOPHEN\OXYCODONE HYDROCHLORIDE
     Indication: PAIN
     Dosage: 10?325 MG; 14 HOUR AS REQUIRED
     Route: 048
     Dates: start: 20160511, end: 20160514
  9. OXYCODONE;PARACETAMOL [Suspect]
     Active Substance: ACETAMINOPHEN\OXYCODONE HYDROCHLORIDE
     Route: 048
     Dates: start: 20160517
  10. TESSALON [Concomitant]
     Active Substance: BENZONATATE
     Route: 048
  11. PROPRANOLOL [Concomitant]
     Active Substance: PROPRANOLOL HYDROCHLORIDE
     Route: 048
  12. ROXICODONE [Concomitant]
     Active Substance: OXYCODONE HYDROCHLORIDE
     Route: 048
  13. PRILOSEC [Concomitant]
     Active Substance: OMEPRAZOLE MAGNESIUM
     Route: 048
     Dates: start: 20151016
  14. MS CONTIN [Concomitant]
     Active Substance: MORPHINE SULFATE
     Route: 048
     Dates: start: 20160710
  15. PREDNISONE. [Concomitant]
     Active Substance: PREDNISONE
     Indication: PRODUCT USED FOR UNKNOWN INDICATION
     Route: 048
     Dates: start: 20151002
  16. TESSALON [Concomitant]
     Active Substance: BENZONATATE
     Indication: PRODUCT USED FOR UNKNOWN INDICATION
     Dosage: AS REQUIRED
     Route: 048
     Dates: start: 20150605
  17. PREDNISONE. [Concomitant]
     Active Substance: PREDNISONE
     Route: 048
     Dates: start: 20160828
  18. TYLENOL [Concomitant]
     Active Substance: ACETAMINOPHEN
  19. DOCUSATE [Suspect]
     Active Substance: DOCUSATE
     Indication: PRODUCT USED FOR UNKNOWN INDICATION
     Route: 048
     Dates: start: 20150824
  20. MORPHINE SULFATE. [Suspect]
     Active Substance: MORPHINE SULFATE
     Indication: PRODUCT USED FOR UNKNOWN INDICATION
     Route: 048
     Dates: start: 20160511
  21. PREDNISONE. [Concomitant]
     Active Substance: PREDNISONE
     Route: 048
     Dates: start: 20160713, end: 20160717
  22. FLEXERIL [Concomitant]
     Active Substance: CYCLOBENZAPRINE HYDROCHLORIDE
     Dosage: AS NEEDED
  23. RITUXIMAB. [Suspect]
     Active Substance: RITUXIMAB
     Indication: ANTI-NEUTROPHIL CYTOPLASMIC ANTIBODY POSITIVE VASCULITIS
     Route: 042
     Dates: start: 20160715
  24. PREDNISONE. [Concomitant]
     Active Substance: PREDNISONE
     Dosage: FOR 5 DAYS
     Route: 048
     Dates: start: 20160713, end: 20160718
  25. FLONASE [Concomitant]
     Active Substance: FLUTICASONE PROPIONATE
     Dosage: INHALE 1 SPRAY IN EACH NOSTRIL DA
     Route: 055
     Dates: start: 20151002

REACTIONS (5)
  - Cholecystectomy [Recovered/Resolved]
  - Cholecystitis acute [Recovered/Resolved]
  - Granulomatosis with polyangiitis [Recovered/Resolved]
  - Device dislocation [Recovered/Resolved]
  - Vasculitis [Recovered/Resolved]

NARRATIVE: CASE EVENT DATE: 20160514
